FAERS Safety Report 21237257 (Version 1)
Quarter: 2022Q3

REPORT INFORMATION
  Report Type: Spontaneous
  Country: IL (occurrence: IL)
  Receive Date: 20220822
  Receipt Date: 20220822
  Transmission Date: 20221027
  Serious: Yes (Hospitalization, Other)
  Sender: FDA-Public Use
  Company Number: IL-ATLANTIDE PHARMACEUTICALS AG-2022ATL000067

PATIENT
  Age: 76 Year
  Sex: Male

DRUGS (2)
  1. CEFTRIAXONE [Suspect]
     Active Substance: CEFTRIAXONE
     Indication: Cardiac valve vegetation
     Dosage: 2 GRAM, BID
     Route: 065
  2. AMPICILLIN [Concomitant]
     Active Substance: AMPICILLIN
     Indication: Cardiac valve vegetation
     Dosage: 3 MILLIGRAM, TID
     Route: 065

REACTIONS (3)
  - Toxic encephalopathy [Recovering/Resolving]
  - Coma [Recovering/Resolving]
  - Renal impairment [Recovering/Resolving]
